FAERS Safety Report 12423266 (Version 1)
Quarter: 2016Q2

REPORT INFORMATION
  Report Type: Report from Study
  Country: BR (occurrence: BR)
  Receive Date: 20160601
  Receipt Date: 20160601
  Transmission Date: 20160815
  Serious: Yes (Other)
  Sender: FDA-Public Use
  Company Number: BR-ABBVIE-13P-020-1080475-00

PATIENT
  Sex: Female
  Weight: 61 kg

DRUGS (12)
  1. PREDSIM [Concomitant]
     Active Substance: PREDNISOLONE
     Indication: ARTHRITIS
     Route: 048
  2. FOLIC ACID. [Concomitant]
     Active Substance: FOLIC ACID
     Indication: VITAMIN SUPPLEMENTATION
     Route: 048
     Dates: start: 2011
  3. NORIPURUM FOLICO [Concomitant]
     Active Substance: FOLIC ACID\IRON POLYMALTOSE
     Indication: ANAEMIA
  4. TRANEXAMIC ACID. [Concomitant]
     Active Substance: TRANEXAMIC ACID
     Indication: MENSTRUAL DISORDER
     Route: 048
     Dates: start: 201212
  5. PREDSIM [Concomitant]
     Active Substance: PREDNISOLONE
     Indication: PAIN
     Route: 048
     Dates: start: 2007
  6. OMEPRAZOLE. [Concomitant]
     Active Substance: OMEPRAZOLE
     Indication: GASTRIC DISORDER
     Route: 048
     Dates: start: 2006
  7. PREDSIM [Concomitant]
     Active Substance: PREDNISOLONE
     Route: 048
  8. METHOTREXATE [Concomitant]
     Active Substance: METHOTREXATE
     Indication: ARTHRITIS
     Route: 048
     Dates: start: 2011
  9. FOLIC ACID. [Concomitant]
     Active Substance: FOLIC ACID
     Indication: ARTHRITIS
  10. HUMIRA [Suspect]
     Active Substance: ADALIMUMAB
     Indication: RHEUMATOID ARTHRITIS
     Route: 058
     Dates: start: 201112
  11. OMEPRAZOLE. [Concomitant]
     Active Substance: OMEPRAZOLE
     Indication: PROPHYLAXIS
  12. NORIPURUM FOLICO [Concomitant]
     Active Substance: FOLIC ACID\IRON POLYMALTOSE
     Indication: VITAMIN SUPPLEMENTATION
     Route: 048
     Dates: start: 201212

REACTIONS (10)
  - Application site pruritus [Recovered/Resolved]
  - Anaemia [Not Recovered/Not Resolved]
  - Blood iron decreased [Not Recovered/Not Resolved]
  - Injection site mass [Recovered/Resolved]
  - Application site erythema [Recovered/Resolved]
  - Mastitis [Unknown]
  - Leiomyoma [Recovered/Resolved]
  - Leiomyoma [Recovering/Resolving]
  - Injection site warmth [Recovered/Resolved]
  - Application site pain [Recovered/Resolved]

NARRATIVE: CASE EVENT DATE: 2012
